FAERS Safety Report 16321929 (Version 1)
Quarter: 2019Q2

REPORT INFORMATION
  Report Type: Spontaneous
  Country: AU (occurrence: AU)
  Receive Date: 20190516
  Receipt Date: 20190516
  Transmission Date: 20190711
  Serious: Yes (Hospitalization)
  Sender: FDA-Public Use
  Company Number: AU-ASTRAZENECA-2019SE70137

PATIENT
  Sex: Male

DRUGS (1)
  1. QTERN [Suspect]
     Active Substance: DAPAGLIFLOZIN\SAXAGLIPTIN HYDROCHLORIDE
     Route: 048

REACTIONS (4)
  - Asthenia [Unknown]
  - Nausea [Unknown]
  - Lethargy [Unknown]
  - Blood pressure increased [Unknown]
